FAERS Safety Report 7112516-8 (Version None)
Quarter: 2010Q4

REPORT INFORMATION
  Report Type: 
  Country: None (occurrence: None)
  Receive Date: 20101119
  Receipt Date: 20101028
  Transmission Date: 20110411
  Serious: Yes (Hospitalization, Other)
  Sender: FDA-Public Use
  Company Number: US-BAYER-201024719NA

PATIENT
  Age: 29 Year
  Sex: Female
  Weight: 107 kg

DRUGS (8)
  1. YASMIN [Suspect]
     Route: 048
     Dates: start: 20051201, end: 20060101
  2. LEXAPRO [Concomitant]
     Indication: ANXIETY
     Route: 065
     Dates: start: 20030101
  3. LEXAPRO [Concomitant]
     Route: 065
  4. LODINE [Concomitant]
     Indication: COSTOCHONDRITIS
     Route: 048
  5. LEVOXYL [Concomitant]
  6. CIPRO [Concomitant]
     Indication: URINARY TRACT INFECTION
     Dosage: PRESCRIBED FOR 14 DAYS
     Dates: start: 20060113
  7. PHENERGAN [Concomitant]
  8. DIFLUCAN [Concomitant]

REACTIONS (8)
  - DEEP VEIN THROMBOSIS [None]
  - ERYTHEMA [None]
  - HYPOKALAEMIA [None]
  - OEDEMA PERIPHERAL [None]
  - PAIN IN EXTREMITY [None]
  - POST THROMBOTIC SYNDROME [None]
  - THROMBOPHLEBITIS [None]
  - THROMBOSIS [None]
